FAERS Safety Report 8434462-X (Version None)
Quarter: 2012Q2

REPORT INFORMATION
  Report Type: 
  Country: None (occurrence: None)
  Receive Date: 20120614
  Receipt Date: 20120531
  Transmission Date: 20120825
  Serious: Yes (Hospitalization, Other)
  Sender: FDA-Public Use
  Company Number: FR-BIOGENIDEC-2011BI038124

PATIENT
  Age: 30 Year
  Sex: Female

DRUGS (1)
  1. TYSABRI [Suspect]
     Indication: MULTIPLE SCLEROSIS
     Route: 042
     Dates: start: 20100101, end: 20110801

REACTIONS (4)
  - MYALGIA [None]
  - RHABDOMYOLYSIS [None]
  - SARCOIDOSIS [None]
  - BLOOD CREATINE PHOSPHOKINASE INCREASED [None]
